FAERS Safety Report 20579703 (Version 1)
Quarter: 2022Q1

REPORT INFORMATION
  Report Type: Spontaneous
  Country: US (occurrence: US)
  Receive Date: 20220310
  Receipt Date: 20220310
  Transmission Date: 20220424
  Serious: Yes (Other)
  Sender: FDA-Public Use
  Company Number: US-PFIZER INC-2021242981

PATIENT
  Age: 81 Year
  Sex: Male

DRUGS (3)
  1. RAPAMUNE [Suspect]
     Active Substance: SIROLIMUS
     Dosage: 2.5 MG, DAILY (TAKE 1 TAB BY MOUTH DAILY - TOTAL 2.5MG)
     Route: 048
  2. RAPAMUNE [Suspect]
     Active Substance: SIROLIMUS
     Dosage: 4 TABLETS (4 MG TOTAL) BY MOUTH DAILY
     Route: 048
     Dates: start: 20210506, end: 20210804
  3. RAPAMUNE [Suspect]
     Active Substance: SIROLIMUS
     Dosage: 0.5 MG (TAKE 5 TABLETS BY MOUTH DAILY
     Route: 048

REACTIONS (2)
  - Illness [Unknown]
  - Dose calculation error [Unknown]
